FAERS Safety Report 22253741 (Version 1)
Quarter: 2023Q2

REPORT INFORMATION
  Report Type: Spontaneous
  Country: US (occurrence: None)
  Receive Date: 20230424
  Receipt Date: 20230424
  Transmission Date: 20230721
  Serious: No
  Sender: FDA-Public Use
  Company Number: None

PATIENT
  Sex: Male

DRUGS (1)
  1. HUMIRA [Suspect]
     Active Substance: ADALIMUMAB
     Indication: Psoriatic arthropathy
     Dosage: FREQUENCY : EVERY OTHER WEEK;?
     Route: 058
     Dates: start: 202212

REACTIONS (8)
  - Pruritus [None]
  - Burning sensation [None]
  - Pain [None]
  - Drug ineffective [None]
  - Rash papular [None]
  - Feeling abnormal [None]
  - Therapy cessation [None]
  - Diarrhoea [None]
